FAERS Safety Report 6318618-8 (Version None)
Quarter: 2009Q3

REPORT INFORMATION
  Report Type: 
  Country: None (occurrence: None)
  Receive Date: 20090819
  Receipt Date: 20090803
  Transmission Date: 20100115
  Serious: Yes (Hospitalization)
  Sender: FDA-Public Use
  Company Number: 2009-0511

PATIENT
  Age: 63 Year
  Sex: Male

DRUGS (5)
  1. DYSPORT [Suspect]
     Indication: ISCHAEMIC STROKE
     Dosage: (900 UNITS,1 IN 4 WK) INTRAMUSCULAR; SINGLE CYCLE
     Route: 030
     Dates: start: 20090309, end: 20090309
  2. DYSPORT [Suspect]
     Indication: MUSCLE SPASTICITY
     Dosage: (900 UNITS,1 IN 4 WK) INTRAMUSCULAR; SINGLE CYCLE
     Route: 030
     Dates: start: 20090309, end: 20090309
  3. LERCAN 10 (LERCANIDIPINE HYDROCHLORIDE) [Concomitant]
  4. IRBESARTAN [Concomitant]
  5. BISOPROLOL FUMARATE [Concomitant]

REACTIONS (4)
  - DRUG EFFECT DECREASED [None]
  - ELECTROMYOGRAM ABNORMAL [None]
  - NEUROMUSCULAR TOXICITY [None]
  - PULMONARY FUNCTION TEST ABNORMAL [None]
